FAERS Safety Report 10157582 (Version 1)
Quarter: 2014Q2

REPORT INFORMATION
  Report Type: Spontaneous
  Country: US (occurrence: US)
  Receive Date: 20140507
  Receipt Date: 20140507
  Transmission Date: 20141212
  Serious: Yes (Other)
  Sender: FDA-Public Use
  Company Number: US-PFIZER INC-2014124093

PATIENT
  Sex: Female

DRUGS (1)
  1. METHYLPREDNISOLONE [Suspect]
     Dosage: UNK

REACTIONS (6)
  - Choking [Unknown]
  - Nausea [Unknown]
  - Headache [Unknown]
  - Dysphagia [Unknown]
  - Dysgeusia [Unknown]
  - Product taste abnormal [Unknown]
